FAERS Safety Report 22645608 (Version 1)
Quarter: 2023Q2

REPORT INFORMATION
  Report Type: Spontaneous
  Country: IN (occurrence: IN)
  Receive Date: 20230627
  Receipt Date: 20230627
  Transmission Date: 20230721
  Serious: Yes (Other)
  Sender: FDA-Public Use
  Company Number: IN-PFIZER INC-2018274553

PATIENT
  Age: 39 Year
  Sex: Male
  Weight: 75 kg

DRUGS (8)
  1. CRIZOTINIB [Suspect]
     Active Substance: CRIZOTINIB
     Indication: Non-small cell lung cancer metastatic
     Dosage: 250 MG, 1X/DAY
     Route: 048
     Dates: start: 20170607, end: 2017
  2. CRIZOTINIB [Suspect]
     Active Substance: CRIZOTINIB
     Dosage: 250 MG, 2X/DAY
     Route: 048
     Dates: start: 20170729
  3. CRIZOTINIB [Suspect]
     Active Substance: CRIZOTINIB
     Dosage: 250 MG, 2X/DAY
     Route: 048
  4. ETANERCEPT [Concomitant]
     Active Substance: ETANERCEPT
     Dosage: 1 DF, 1X/DAY, 3 MONTHS
  5. CCM [Concomitant]
     Dosage: 1 DF, 1X/DAY FOR 3 MONTHS
  6. AUGMENTIN [Concomitant]
     Active Substance: AMOXICILLIN\CLAVULANATE POTASSIUM
     Dosage: 625 MG, 2X/DAY, FOR 5 DAYS
  7. MUCAINE [ALUMINIUM HYDROXIDE;MAGNESIUM CARBONATE;OXETACAINE] [Concomitant]
     Dosage: 10 ML, 3X/DAY, FOR 10 DAY
  8. LORLATINIB [Concomitant]
     Active Substance: LORLATINIB
     Dosage: 100 MG, 1X/DAY FOR 1 MONTH
     Route: 048

REACTIONS (16)
  - Pulmonary embolism [Unknown]
  - Deep vein thrombosis [Unknown]
  - Hepatic steatosis [Unknown]
  - Oropharyngeal pain [Unknown]
  - Alanine aminotransferase increased [Unknown]
  - Aspartate aminotransferase increased [Unknown]
  - Haemoptysis [Unknown]
  - Pyrexia [Unknown]
  - Fibrin D dimer increased [Unknown]
  - Neoplasm progression [Unknown]
  - Vision blurred [Unknown]
  - Memory impairment [Unknown]
  - Pleural effusion [Unknown]
  - Influenza [Unknown]
  - Blood uric acid increased [Unknown]
  - Off label use [Unknown]

NARRATIVE: CASE EVENT DATE: 20230414
